FAERS Safety Report 4577005-3 (Version None)
Quarter: 2005Q1

REPORT INFORMATION
  Report Type: 
  Country: None (occurrence: None)
  Receive Date: 20050208
  Receipt Date: 20050126
  Transmission Date: 20050727
  Serious: Yes (Other)
  Sender: FDA-Public Use
  Company Number: 2005023849

PATIENT
  Age: 70 Year
  Sex: Female

DRUGS (4)
  1. CELEBREX [Suspect]
     Indication: ARTHRITIS
     Dosage: ORAL
     Route: 048
     Dates: start: 20040101
  2. CELEBREX [Suspect]
     Indication: PAIN
     Dosage: ORAL
     Route: 048
     Dates: start: 20040101
  3. CELEBREX [Suspect]
     Indication: ROTATOR CUFF SYNDROME
     Dosage: ORAL
     Route: 048
     Dates: start: 20040101
  4. LATANOPROST [Concomitant]

REACTIONS (2)
  - FALL [None]
  - ROTATOR CUFF SYNDROME [None]
